FAERS Safety Report 23634250 (Version 1)
Quarter: 2024Q1

REPORT INFORMATION
  Report Type: Spontaneous
  Country: RU (occurrence: None)
  Receive Date: 20240314
  Receipt Date: 20240314
  Transmission Date: 20240410
  Serious: Yes (Death)
  Sender: FDA-Public Use
  Company Number: 2024A062287

PATIENT

DRUGS (15)
  1. METOPROLOL TARTRATE [Suspect]
     Active Substance: METOPROLOL TARTRATE
     Indication: Acute myocardial infarction
     Dosage: 25-75 MG
     Route: 048
  2. METOPROLOL TARTRATE [Suspect]
     Active Substance: METOPROLOL TARTRATE
     Indication: Acute myocardial infarction
     Dosage: 50-125 MG
     Route: 048
  3. METOPROLOL TARTRATE [Suspect]
     Active Substance: METOPROLOL TARTRATE
     Indication: Acute myocardial infarction
     Dosage: 75-200 MG
     Route: 048
  4. TICAGRELOR [Suspect]
     Active Substance: TICAGRELOR
     Indication: Acute myocardial infarction
     Route: 048
  5. LISINOPRIL [Suspect]
     Active Substance: LISINOPRIL
     Indication: Acute myocardial infarction
     Dosage: 1.25-2.5 MG
     Route: 048
  6. LISINOPRIL [Suspect]
     Active Substance: LISINOPRIL
     Indication: Acute myocardial infarction
     Dosage: 1.25-10 MG
     Route: 048
  7. LISINOPRIL [Suspect]
     Active Substance: LISINOPRIL
     Indication: Acute myocardial infarction
     Dosage: 5-10 MG
     Route: 048
  8. HEPARIN [Concomitant]
     Active Substance: HEPARIN SODIUM
  9. ASPIRIN [Concomitant]
     Active Substance: ASPIRIN
  10. CLOPIDOGREL [Concomitant]
     Active Substance: CLOPIDOGREL BISULFATE
  11. ATORVASTATIN [Concomitant]
     Active Substance: ATORVASTATIN
  12. VALSARTAN [Concomitant]
     Active Substance: VALSARTAN
  13. AMLODIPINE [Concomitant]
     Active Substance: AMLODIPINE BESYLATE
  14. SPIRONOLACTONE [Concomitant]
     Active Substance: SPIRONOLACTONE
  15. EPLERENONE [Concomitant]
     Active Substance: EPLERENONE

REACTIONS (1)
  - Ischaemic stroke [Fatal]
